FAERS Safety Report 4915099-3 (Version None)
Quarter: 2006Q1

REPORT INFORMATION
  Report Type: 
  Country: None (occurrence: None)
  Receive Date: 20060215
  Receipt Date: 20060215
  Transmission Date: 20060701
  Serious: Yes (Life-Threatening)
  Sender: FDA-Public Use
  Company Number: None

PATIENT
  Age: 58 Year
  Sex: Female

DRUGS (2)
  1. SUCCINYLCHOLINE CHLORIDE [Suspect]
     Indication: ANAESTHESIA
     Dosage: 100MG ONCE IV
     Route: 042
     Dates: start: 20050928, end: 20050928
  2. PROPOFOL [Suspect]
     Indication: ANAESTHESIA
     Dosage: 100MG ONCE IV
     Route: 042
     Dates: start: 20050928, end: 20050928

REACTIONS (4)
  - CARDIAC ARREST [None]
  - PROCEDURAL COMPLICATION [None]
  - SURGICAL PROCEDURE REPEATED [None]
  - VENTRICULAR TACHYCARDIA [None]
